FAERS Safety Report 21333360 (Version 1)
Quarter: 2022Q3

REPORT INFORMATION
  Report Type: Spontaneous
  Country: US (occurrence: US)
  Receive Date: 20220914
  Receipt Date: 20220914
  Transmission Date: 20221026
  Serious: Yes (Death, Hospitalization, Other)
  Sender: FDA-Public Use
  Company Number: US-SA-2022SA378371

PATIENT
  Age: 77 Year
  Sex: Male
  Weight: 88 kg

DRUGS (3)
  1. TAXOTERE [Suspect]
     Active Substance: DOCETAXEL
     Indication: Neoplasm
     Dosage: UNK
     Dates: start: 20220215, end: 20220719
  2. ASPIRIN [Concomitant]
     Active Substance: ASPIRIN
     Dosage: UNK
  3. APIXABAN [Concomitant]
     Active Substance: APIXABAN
     Dosage: 10 MG

REACTIONS (6)
  - Disease progression [Fatal]
  - Hypoxia [Unknown]
  - Rhonchi [Unknown]
  - Pleural effusion [Unknown]
  - Pneumonitis [Unknown]
  - Dyspnoea [Not Recovered/Not Resolved]

NARRATIVE: CASE EVENT DATE: 20220730
